FAERS Safety Report 16608857 (Version 2)
Quarter: 2019Q4

REPORT INFORMATION
  Report Type: Spontaneous
  Country: US (occurrence: US)
  Receive Date: 20190722
  Receipt Date: 20191022
  Transmission Date: 20200122
  Serious: No
  Sender: FDA-Public Use
  Company Number: US-PFIZER INC-2016523887

PATIENT
  Age: 71 Year
  Sex: Female
  Weight: 47.62 kg

DRUGS (2)
  1. IBRANCE [Suspect]
     Active Substance: PALBOCICLIB
     Indication: BREAST CANCER FEMALE
     Dosage: 100 MG, QDAY (EVERY DAY) FOR 21 DAYS, THEN OFF FOR 1 DAYS
     Route: 048
     Dates: start: 20161107
  2. IBRANCE [Suspect]
     Active Substance: PALBOCICLIB
     Dosage: 75 MG, 1X/DAY
     Route: 048

REACTIONS (1)
  - Hypoacusis [Recovered/Resolved]
